FAERS Safety Report 16557745 (Version 1)
Quarter: 2019Q3

REPORT INFORMATION
  Report Type: Spontaneous
  Country: US (occurrence: US)
  Receive Date: 20190711
  Receipt Date: 20190711
  Transmission Date: 20191004
  Serious: Yes (Hospitalization, Other)
  Sender: FDA-Public Use
  Company Number: US-SUN PHARMACEUTICAL INDUSTRIES LTD-2019R1-203634

PATIENT
  Age: 33 Year
  Sex: Male

DRUGS (2)
  1. WARFARIN [Concomitant]
     Active Substance: WARFARIN
     Indication: PROPHYLAXIS
     Dosage: 5 MG, UNK
     Route: 065
  2. DOFETILIDE. [Suspect]
     Active Substance: DOFETILIDE
     Indication: ATRIAL FIBRILLATION
     Dosage: UNK, 5 DOSES
     Route: 065

REACTIONS (3)
  - Nausea [Unknown]
  - Therapy cessation [Unknown]
  - Drug-induced liver injury [Recovered/Resolved]
